FAERS Safety Report 4830514-1 (Version None)
Quarter: 2005Q4

REPORT INFORMATION
  Report Type: 
  Country: None (occurrence: None)
  Receive Date: 20051115
  Receipt Date: 20050808
  Transmission Date: 20060501
  Serious: Yes (Death, Life-Threatening, Hospitalization)
  Sender: FDA-Public Use
  Company Number: 003#3#2005-00177

PATIENT
  Age: 75 Year
  Sex: Female

DRUGS (8)
  1. GLYCERYL TRINITRATE (DOSE UNKNOWN) (GLYCERYL TRINITRATE) [Suspect]
  2. LANSOPRAZOLE [Suspect]
  3. ASPIRIN [Suspect]
  4. LISINOPRIL [Suspect]
  5. ATENOLOL [Concomitant]
  6. FUROSEMIDE [Concomitant]
  7. ATORVASTATIN CALCIUM [Concomitant]
  8. NITROGYLCERIN (GLYCERYL TRINITRATE) [Concomitant]

REACTIONS (8)
  - COLON CANCER [None]
  - GASTROINTESTINAL HAEMORRHAGE [None]
  - LOWER RESPIRATORY TRACT INFECTION [None]
  - MYOCARDIAL INFARCTION [None]
  - OBSTRUCTIVE AIRWAYS DISORDER [None]
  - OVERDOSE [None]
  - PULMONARY OEDEMA [None]
  - STRIDOR [None]
